FAERS Safety Report 16474517 (Version 1)
Quarter: 2019Q2

REPORT INFORMATION
  Report Type: Report from Study
  Country: JP (occurrence: JP)
  Receive Date: 20190625
  Receipt Date: 20190625
  Transmission Date: 20190711
  Serious: Yes (Other)
  Sender: FDA-Public Use
  Company Number: JP-TAKEDA-2019TUS039622

PATIENT

DRUGS (2)
  1. BORTEZOMIB. [Suspect]
     Active Substance: BORTEZOMIB
     Indication: POEMS SYNDROME
     Dosage: UNK
     Route: 058
  2. DEXAMETHASONE. [Concomitant]
     Active Substance: DEXAMETHASONE
     Indication: POEMS SYNDROME
     Dosage: 20 MILLIGRAM, QD
     Route: 065

REACTIONS (7)
  - Interstitial lung disease [Unknown]
  - Cytopenia [Unknown]
  - Off label use [Unknown]
  - Ileus [Unknown]
  - Product use in unapproved indication [Unknown]
  - Neuropathy peripheral [Unknown]
  - Constipation [Unknown]
